FAERS Safety Report 8764232 (Version 2)
Quarter: 2012Q4

REPORT INFORMATION
  Report Type: 
  Country: JP (occurrence: JP)
  Receive Date: 20120831
  Receipt Date: 20121218
  Transmission Date: 20130627
  Serious: Yes (Other)
  Sender: FDA-Public Use
  Company Number: JP-009507513-1208JPN011053

PATIENT
  Age: 64 Year
  Sex: Female
  Weight: 65 kg

DRUGS (14)
  1. PEGINTRON [Suspect]
     Indication: CHRONIC HEPATITIS C
     Dosage: 1.0 Microgram per kilogram, qw
     Route: 058
     Dates: start: 20120511, end: 20121026
  2. REBETOL [Suspect]
     Indication: CHRONIC HEPATITIS C
     Dosage: 600 mg, qd
     Route: 048
     Dates: start: 20120511, end: 20120607
  3. REBETOL [Suspect]
     Dosage: 400 mg, qd
     Route: 048
     Dates: start: 20120608, end: 20120621
  4. REBETOL [Suspect]
     Dosage: 600 mg, qd
     Route: 048
     Dates: start: 20120622, end: 20120705
  5. REBETOL [Suspect]
     Dosage: 400 mg, qd
     Route: 048
     Dates: start: 20120706
  6. REBETOL [Suspect]
     Dosage: 200 mg qd
     Route: 048
     Dates: end: 20120923
  7. REBETOL [Suspect]
     Dosage: 400 mg qd
     Route: 048
     Dates: start: 20120924, end: 20121026
  8. TELAVIC [Suspect]
     Indication: CHRONIC HEPATITIS C
     Dosage: 1500 mg, qd
     Route: 048
     Dates: start: 20120511, end: 20120803
  9. WARFARIN [Concomitant]
     Indication: PORTAL VEIN THROMBOSIS
     Dosage: Formulation: POR, 5 mg, qd
     Route: 048
  10. FEROTYM [Concomitant]
     Indication: IRON DEFICIENCY ANAEMIA
     Dosage: Formulation: POR, 100 mg, qd
     Route: 048
  11. CLARITIN REDITABS [Concomitant]
     Indication: PROPHYLAXIS
     Dosage: Formulation: POR, 10 mg, qd
     Route: 048
  12. LIVALO [Concomitant]
     Indication: HYPERLIPIDAEMIA
     Dosage: Formulation: POR,1 mg, qd
     Route: 048
  13. EPADEL [Concomitant]
     Indication: HYPERLIPIDAEMIA
     Dosage: Formulation: POR, 1800 mg, qd
     Route: 048
  14. [THERAPY UNSPECIFIED] [Concomitant]
     Dosage: Formulation: POR,UNK

REACTIONS (2)
  - Anaemia [Not Recovered/Not Resolved]
  - Anaemia [Recovering/Resolving]
